FAERS Safety Report 6274717-0 (Version None)
Quarter: 2009Q3

REPORT INFORMATION
  Report Type: 
  Country: None (occurrence: None)
  Receive Date: 20090721
  Receipt Date: 20070803
  Transmission Date: 20100115
  Serious: Yes (Other)
  Sender: FDA-Public Use
  Company Number: US-ASTRAZENECA-2007UW12255

PATIENT
  Age: 659 Month
  Sex: Male
  Weight: 103.4 kg

DRUGS (9)
  1. SEROQUEL [Suspect]
     Indication: SCHIZOPHRENIA
     Dosage: 100 MG - 1000 MG DAILY
     Route: 048
     Dates: start: 20000728, end: 20080524
  2. SEROQUEL [Suspect]
     Route: 048
     Dates: start: 20000701, end: 20050701
  3. CLONAZEPAM [Concomitant]
     Dosage: 0.5 MG THREE TIMES A DAY, 1 MG TWO TIMES A DAY, 2 MG AT NIGHT
     Dates: start: 20000730
  4. DIAZEPAM [Concomitant]
     Route: 048
     Dates: start: 20000223
  5. ATENOLOL [Concomitant]
     Route: 048
     Dates: start: 20030505
  6. GABAPENTIN [Concomitant]
     Dosage: 400 MG THREE TIMES A DAY, 800 MG FOUR TIMES A DAY
     Dates: start: 20030505
  7. IBUPROFEN [Concomitant]
     Route: 048
     Dates: start: 20030505
  8. TRAZODONE HCL [Concomitant]
     Dosage: 300 MG TWO TIMES A DAY, 100 MG AT NIGHT
     Dates: start: 20000728
  9. CODEINE SUL TAB [Concomitant]
     Indication: NEURALGIA
     Dosage: 120 MG FOUR TIMES A DAY, 150 MG FOUR TIMES A DAY
     Dates: start: 20000730

REACTIONS (4)
  - DIABETES MELLITUS [None]
  - DIABETIC NEUROPATHY [None]
  - GLUCOSE TOLERANCE IMPAIRED [None]
  - TYPE 2 DIABETES MELLITUS [None]
